FAERS Safety Report 9861865 (Version 2)
Quarter: 2014Q1

REPORT INFORMATION
  Report Type: Spontaneous
  Country: CA (occurrence: CA)
  Receive Date: 20140203
  Receipt Date: 20140212
  Transmission Date: 20141002
  Serious: Yes (Other)
  Sender: FDA-Public Use
  Company Number: CA-ROCHE-1341272

PATIENT
  Age: 32 Year
  Sex: Male

DRUGS (2)
  1. XOLAIR [Suspect]
     Indication: ASTHMA
     Route: 058
     Dates: start: 20131101
  2. XOLAIR [Suspect]
     Route: 058
     Dates: start: 20140207

REACTIONS (2)
  - Type 1 diabetes mellitus [Unknown]
  - Heart rate increased [Unknown]
